FAERS Safety Report 23056988 (Version 1)
Quarter: 2023Q4

REPORT INFORMATION
  Report Type: Report from Study
  Country: HR (occurrence: HR)
  Receive Date: 20231012
  Receipt Date: 20231012
  Transmission Date: 20240110
  Serious: Yes (Other)
  Sender: FDA-Public Use
  Company Number: HR-TEVA-2023-HR-2934243

PATIENT
  Age: 48 Year
  Sex: Female

DRUGS (1)
  1. COPAXONE [Suspect]
     Active Substance: GLATIRAMER ACETATE
     Indication: Multiple sclerosis
     Dates: start: 20181220

REACTIONS (6)
  - Paraesthesia [Unknown]
  - Abdominal discomfort [Unknown]
  - Pain in jaw [Unknown]
  - Chills [Unknown]
  - Immediate post-injection reaction [Unknown]
  - Tachycardia [Recovered/Resolved]

NARRATIVE: CASE EVENT DATE: 20230929
